FAERS Safety Report 15178318 (Version 3)
Quarter: 2025Q3

REPORT INFORMATION
  Report Type: Report from Study
  Country: EU (occurrence: EU)
  Receive Date: 20180721
  Receipt Date: 20250708
  Transmission Date: 20251021
  Serious: Yes (Congenital Anomaly, Other)
  Sender: AUROBINDO
  Company Number: EU-AUROBINDO-AUR-APL-2018-036864

PATIENT
  Sex: Male

DRUGS (4)
  1. LISINOPRIL [Suspect]
     Active Substance: LISINOPRIL
     Indication: Product used for unknown indication
     Route: 064
  2. DEQUALINIUM [Concomitant]
     Active Substance: DEQUALINIUM
     Indication: Product used for unknown indication
     Route: 064
  3. NYSTATIN [Concomitant]
     Active Substance: NYSTATIN
     Indication: Product used for unknown indication
     Route: 064
  4. OPIPRAMOL [Concomitant]
     Active Substance: OPIPRAMOL
     Indication: Product used for unknown indication
     Route: 064

REACTIONS (4)
  - Patent ductus arteriosus [Unknown]
  - Transposition of the great vessels [Unknown]
  - Atrial septal defect [Unknown]
  - Foetal exposure during pregnancy [Unknown]
